FAERS Safety Report 13517151 (Version 1)
Quarter: 2017Q2

REPORT INFORMATION
  Report Type: Spontaneous
  Country: US (occurrence: US)
  Receive Date: 20170505
  Receipt Date: 20170505
  Transmission Date: 20170830
  Serious: Yes (Hospitalization)
  Sender: FDA-Public Use
  Company Number: None

PATIENT
  Age: 85 Year
  Sex: Female
  Weight: 59.1 kg

DRUGS (12)
  1. ACTIVASE [Suspect]
     Active Substance: ALTEPLASE
     Indication: CEREBROVASCULAR ACCIDENT
     Dosage: DOSE - 0.81MG/KG X 60.3 KG?DATES OF USE - RECENT
     Route: 042
  2. OXYCODONE [Concomitant]
     Active Substance: OXYCODONE
  3. RANEXA [Concomitant]
     Active Substance: RANOLAZINE
  4. FOSAMAX [Concomitant]
     Active Substance: ALENDRONATE SODIUM
  5. TOPROL XL [Concomitant]
     Active Substance: METOPROLOL SUCCINATE
  6. PLAVIX [Concomitant]
     Active Substance: CLOPIDOGREL BISULFATE
  7. GLUCOTROL [Concomitant]
     Active Substance: GLIPIZIDE
  8. ZETIA [Concomitant]
     Active Substance: EZETIMIBE
  9. APRESOLINE HYDROCHLORIDE [Concomitant]
     Active Substance: HYDRALAZINE HYDROCHLORIDE
  10. CRESTOR [Concomitant]
     Active Substance: ROSUVASTATIN CALCIUM
  11. SYNTHROID [Concomitant]
     Active Substance: LEVOTHYROXINE SODIUM
  12. MVI [Concomitant]
     Active Substance: VITAMINS

REACTIONS (2)
  - Haematemesis [None]
  - Cerebrovascular accident [None]

NARRATIVE: CASE EVENT DATE: 20170123
